FAERS Safety Report 13784337 (Version 1)
Quarter: 2017Q3

REPORT INFORMATION
  Report Type: Spontaneous
  Country: US (occurrence: US)
  Receive Date: 20170724
  Receipt Date: 20170724
  Transmission Date: 20171127
  Serious: Yes (Other)
  Sender: FDA-Public Use
  Company Number: PHHY2017US103783

PATIENT
  Age: 77 Year
  Sex: Female

DRUGS (2)
  1. METOPROLOL. [Concomitant]
     Active Substance: METOPROLOL
     Indication: PRODUCT USED FOR UNKNOWN INDICATION
     Route: 065
  2. METHIMAZOLE TABLETS, USP [Suspect]
     Active Substance: METHIMAZOLE
     Indication: BASEDOW^S DISEASE
     Dosage: 10 MG, TID
     Route: 065

REACTIONS (6)
  - Hyperthyroidism [Unknown]
  - Pancytopenia [Recovering/Resolving]
  - Anaemia [Unknown]
  - Hyperbilirubinaemia [Unknown]
  - Abdominal pain [Unknown]
  - Cholestasis [Recovering/Resolving]
